FAERS Safety Report 14674485 (Version 7)
Quarter: 2018Q3

REPORT INFORMATION
  Report Type: Spontaneous
  Country: CA (occurrence: CA)
  Receive Date: 20180323
  Receipt Date: 20180829
  Transmission Date: 20181010
  Serious: Yes (Hospitalization, Other)
  Sender: FDA-Public Use
  Company Number: CA-CELLTRION INC.-2017CA017536

PATIENT

DRUGS (15)
  1. INFLECTRA [Suspect]
     Active Substance: INFLIXIMAB-DYYB
     Indication: CROHN^S DISEASE
     Dosage: 400 MG CYCLIC  EVERY 0, 2, 6 WEEKS, THEN EVERY 8 WEEKS
     Route: 042
     Dates: start: 20171213
  2. INFLECTRA [Suspect]
     Active Substance: INFLIXIMAB-DYYB
     Dosage: 400 MG CYCLIC  EVERY 0,2,6 WEEKS THEN EVERY 8 WEEK
     Route: 065
     Dates: start: 20180403
  3. INFLECTRA [Suspect]
     Active Substance: INFLIXIMAB-DYYB
     Dosage: 400 MG CYCLIC  EVERY 0,2,6 WEEKS THEN EVERY 8 WEEK
     Route: 042
     Dates: start: 20180528
  4. FOLIC ACID. [Concomitant]
     Active Substance: FOLIC ACID
     Dosage: 5 MG, DAILY
     Route: 048
     Dates: start: 20171129
  5. INFLECTRA [Suspect]
     Active Substance: INFLIXIMAB-DYYB
     Dosage: 400 MG  CYCLIC EVERY 0,2,6 WEEKS THEN EVERY 8 WEEK
     Route: 042
     Dates: start: 20171220
  6. MEZAVANT [Concomitant]
     Active Substance: MESALAMINE
     Dosage: 4.8 G, DAILY
     Route: 048
     Dates: start: 20171129
  7. INFLECTRA [Suspect]
     Active Substance: INFLIXIMAB-DYYB
     Dosage: 400 MG CYCLIC EVERY 0,2,6 WEEKS THEN EVERY 8 WEEK
     Route: 065
     Dates: start: 20180112
  8. METHOTREXATE. [Concomitant]
     Active Substance: METHOTREXATE
     Dosage: 5 TABLETS WEEKLY
     Route: 048
     Dates: start: 20171205
  9. SEROQUEL [Concomitant]
     Active Substance: QUETIAPINE FUMARATE
     Dosage: 100 MG, DAILY
     Route: 048
  10. INFLECTRA [Suspect]
     Active Substance: INFLIXIMAB-DYYB
     Dosage: 400 MG CYCLIC  EVERY 0,2,6 WEEKS THEN EVERY 8 WEEK
     Route: 042
     Dates: start: 20180528
  11. PREDNISONE. [Concomitant]
     Active Substance: PREDNISONE
     Dosage: 40 MG TO BE TAPERED TO 0 MG
     Route: 065
     Dates: start: 201711
  12. PERCOCET                           /00446701/ [Concomitant]
     Active Substance: ACETAMINOPHEN\OXYCODONE HYDROCHLORIDE\OXYCODONE TEREPHTHALATE
     Dosage: UP TO 5 TIMES DAILY
  13. INFLECTRA [Suspect]
     Active Substance: INFLIXIMAB-DYYB
     Dosage: 400 MG  CYCLIC EVERY 0,2,6 WEEKS THEN EVERY 8 WEEK
     Route: 065
     Dates: start: 20171220
  14. GRAVOL [Concomitant]
     Active Substance: DIMENHYDRINATE
     Dosage: 50 MG AS NEEDED
     Route: 048
  15. INFLECTRA [Suspect]
     Active Substance: INFLIXIMAB-DYYB
     Dosage: 400 MG CYCLIC EVERY 0,2,6 WEEKS THEN EVERY 8 WEEK
     Route: 065
     Dates: start: 20180112

REACTIONS (9)
  - Product use issue [Not Recovered/Not Resolved]
  - Blood pressure fluctuation [Unknown]
  - Product use issue [Unknown]
  - Intestinal perforation [Not Recovered/Not Resolved]
  - Inappropriate schedule of drug administration [Unknown]
  - Pulmonary embolism [Unknown]
  - Drug level decreased [Unknown]
  - Weight increased [Unknown]
  - Heart rate decreased [Unknown]

NARRATIVE: CASE EVENT DATE: 20171213
